FAERS Safety Report 9517422 (Version 1)
Quarter: 2013Q3

REPORT INFORMATION
  Report Type: Spontaneous
  Country: US (occurrence: US)
  Receive Date: 20130911
  Receipt Date: 20130911
  Transmission Date: 20140515
  Serious: Yes (Hospitalization)
  Sender: FDA-Public Use
  Company Number: US-UCBSA-096832

PATIENT
  Sex: 0

DRUGS (3)
  1. VIMPAT [Suspect]
  2. VIMPAT [Suspect]
  3. LYRICA [Concomitant]

REACTIONS (6)
  - Hospitalisation [Unknown]
  - Balance disorder [Unknown]
  - Insomnia [Unknown]
  - Abnormal dreams [Unknown]
  - Alopecia [Not Recovered/Not Resolved]
  - Visual impairment [Unknown]
